FAERS Safety Report 5874569-4 (Version None)
Quarter: 2008Q3

REPORT INFORMATION
  Report Type: 
  Country: None (occurrence: None)
  Receive Date: 20080909
  Receipt Date: 20080905
  Transmission Date: 20090109
  Serious: Yes (Life-Threatening, Hospitalization)
  Sender: FDA-Public Use
  Company Number: PHHY2008CH20264

PATIENT
  Age: 58 Year
  Sex: Female

DRUGS (3)
  1. CLOZAPINE [Suspect]
     Dosage: 100 MG, ONE TABLET
     Dates: start: 20080527
  2. SEROQUEL [Concomitant]
  3. XANAX [Concomitant]

REACTIONS (2)
  - ACCIDENTAL EXPOSURE [None]
  - HYPOTENSION [None]
